FAERS Safety Report 9036667 (Version 1)
Quarter: 2013Q1

REPORT INFORMATION
  Report Type: Spontaneous
  Country: US (occurrence: None)
  Receive Date: 20130117
  Receipt Date: 20130117
  Transmission Date: 20140127
  Serious: Yes (Other)
  Sender: FDA-Public Use
  Company Number: None

PATIENT
  Age: 64 Year
  Sex: Male

DRUGS (2)
  1. TACROLIMUS [Suspect]
     Route: 048
     Dates: start: 20101006
  2. MYCOPHENOLATE [Suspect]
     Route: 048
     Dates: start: 20100504

REACTIONS (1)
  - Headache [None]
